FAERS Safety Report 9450485 (Version 1)
Quarter: 2013Q3

REPORT INFORMATION
  Report Type: Spontaneous
  Country: TR (occurrence: TR)
  Receive Date: 20130809
  Receipt Date: 20130809
  Transmission Date: 20140515
  Serious: Yes (Hospitalization, Other)
  Sender: FDA-Public Use
  Company Number: TR-009507513-1307TUR016593

PATIENT
  Age: 27 Year
  Sex: Female

DRUGS (3)
  1. FOLLITROPIN BETA [Suspect]
     Indication: OVULATION INDUCTION
     Dosage: 225 IU, QD
     Route: 065
  2. FOLLITROPIN BETA [Suspect]
     Indication: INFERTILITY
     Dosage: 75 IU, UNK
     Route: 065
  3. CETRORELIX [Suspect]
     Dosage: UNK

REACTIONS (3)
  - Nephrotic syndrome [Not Recovered/Not Resolved]
  - Ovarian hyperstimulation syndrome [Not Recovered/Not Resolved]
  - Chest tube insertion [Unknown]
